FAERS Safety Report 6175850-4 (Version None)
Quarter: 2009Q2

REPORT INFORMATION
  Report Type: 
  Country: None (occurrence: None)
  Receive Date: 20090501
  Receipt Date: 20090423
  Transmission Date: 20091009
  Serious: Yes (Hospitalization)
  Sender: FDA-Public Use
  Company Number: US-ELI_LILLY_AND_COMPANY-US200904006251

PATIENT
  Sex: Male

DRUGS (2)
  1. CYMBALTA [Suspect]
  2. NEURONTIN [Concomitant]

REACTIONS (1)
  - RENAL FAILURE [None]
